FAERS Safety Report 7488897-2 (Version None)
Quarter: 2011Q1

REPORT INFORMATION
  Report Type: 
  Country: None (occurrence: None)
  Receive Date: 20110315
  Receipt Date: 20101222
  Transmission Date: 20110831
  Serious: Yes (Other)
  Sender: FDA-Public Use
  Company Number: DSA_44568_2010

PATIENT
  Age: 79 Year
  Sex: Female

DRUGS (3)
  1. XENAZINE [Suspect]
     Indication: DYSKINESIA
     Dosage: (25 MG BID ORAL) , (12.5 MG BID ORAL), (DF ORAL)
     Route: 048
     Dates: start: 20100901, end: 20101205
  2. XENAZINE [Suspect]
     Indication: DYSKINESIA
     Dosage: (25 MG BID ORAL) , (12.5 MG BID ORAL), (DF ORAL)
     Route: 048
     Dates: start: 20101206
  3. XENAZINE [Suspect]
     Indication: DYSKINESIA
     Dosage: (25 MG BID ORAL) , (12.5 MG BID ORAL), (DF ORAL)
     Route: 048
     Dates: start: 20100604, end: 20100901

REACTIONS (1)
  - PARKINSONISM [None]
